FAERS Safety Report 7513268-X (Version None)
Quarter: 2011Q2

REPORT INFORMATION
  Report Type: 
  Country: None (occurrence: None)
  Receive Date: 20110531
  Receipt Date: 20110418
  Transmission Date: 20111010
  Serious: Yes (Hospitalization, Other)
  Sender: FDA-Public Use
  Company Number: US-BAYER-2010-009248

PATIENT
  Age: 45 Year
  Sex: Female
  Weight: 79 kg

DRUGS (4)
  1. DROSPIRENONE AND ETHINYL ESTRADIOL [Suspect]
     Indication: ACNE
  2. YASMIN [Suspect]
     Indication: ACNE
     Dosage: UNK
  3. YAZ [Suspect]
     Indication: ACNE
     Dosage: UNK
     Dates: start: 20061001, end: 20071201
  4. STEROID ANTIBACTERIALS [Concomitant]
     Indication: RASH

REACTIONS (7)
  - CHOLELITHIASIS [None]
  - GALLBLADDER DISORDER [None]
  - INJURY [None]
  - INTESTINAL INFARCTION [None]
  - INTESTINAL ISCHAEMIA [None]
  - DEPRESSION [None]
  - PAIN [None]
